FAERS Safety Report 4943995-X (Version None)
Quarter: 2006Q1

REPORT INFORMATION
  Report Type: 
  Country: None (occurrence: None)
  Receive Date: 20060310
  Receipt Date: 20060306
  Transmission Date: 20060701
  Serious: Yes (Hospitalization)
  Sender: FDA-Public Use
  Company Number: A0596317A

PATIENT
  Sex: 0

DRUGS (1)
  1. AVANDIA [Suspect]

REACTIONS (2)
  - CARDIAC FAILURE [None]
  - HEPATIC CIRRHOSIS [None]
